FAERS Safety Report 19778597 (Version 1)
Quarter: 2021Q3

REPORT INFORMATION
  Report Type: Spontaneous
  Country: US (occurrence: US)
  Receive Date: 20210830
  Receipt Date: 20210830
  Transmission Date: 20211014
  Serious: Yes (Death)
  Sender: FDA-Public Use
  Company Number: None

PATIENT
  Age: 66 Year
  Sex: Female

DRUGS (2)
  1. NUEDEXTA [Suspect]
     Active Substance: DEXTROMETHORPHAN HYDROBROMIDE\QUINIDINE SULFATE
     Dosage: ?          OTHER DOSE:20?10 MG;?
     Route: 048
     Dates: start: 20210426
  2. PRALUENT [Suspect]
     Active Substance: ALIROCUMAB
     Route: 030
     Dates: start: 20210121

REACTIONS (1)
  - Death [None]
